FAERS Safety Report 18814408 (Version 1)
Quarter: 2021Q1

REPORT INFORMATION
  Report Type: Spontaneous
  Country: US (occurrence: US)
  Receive Date: 20210126
  Receipt Date: 20210126
  Transmission Date: 20210419
  Serious: Yes (Other)
  Sender: FDA-Public Use
  Company Number: None

PATIENT
  Age: 85 Year
  Sex: Female
  Weight: 82.55 kg

DRUGS (8)
  1. HYDRALAZINE [Suspect]
     Active Substance: HYDRALAZINE HYDROCHLORIDE
     Indication: BLOOD PRESSURE MEASUREMENT
     Dosage: ?          QUANTITY:1 DF DOSAGE FORM;?
     Route: 048
     Dates: start: 20201123
  2. VERAPAMIL [Concomitant]
     Active Substance: VERAPAMIL HYDROCHLORIDE
  3. FUROSEMIDE. [Concomitant]
     Active Substance: FUROSEMIDE
  4. LIOTHYRONINE 25 MCG [Concomitant]
     Active Substance: LIOTHYRONINE SODIUM
  5. GARDEN OF LIFE VITAMINS (50 AND OLDER) [Concomitant]
  6. LEVOTHYROXIN 15 MCG [Concomitant]
  7. CYANOCOBOLAMINE [Concomitant]
  8. BRYOPHYLLUM (HOMEOPATHIC) PRN FOR SLEEP [Concomitant]

REACTIONS (9)
  - Agitation [None]
  - Laboratory test abnormal [None]
  - Oedema [None]
  - Weight increased [None]
  - Confusional state [None]
  - Malaise [None]
  - Asthenia [None]
  - Therapy cessation [None]
  - Mental status changes [None]

NARRATIVE: CASE EVENT DATE: 20201117
